FAERS Safety Report 5353424-2 (Version None)
Quarter: 2007Q2

REPORT INFORMATION
  Report Type: 
  Country: None (occurrence: None)
  Receive Date: 20070612
  Receipt Date: 20070604
  Transmission Date: 20071010
  Serious: Yes (Hospitalization)
  Sender: FDA-Public Use
  Company Number: PHEH2007US08414

PATIENT
  Age: 41 Year
  Sex: Female
  Weight: 110.66 kg

DRUGS (13)
  1. AREDIA [Suspect]
     Indication: OSTEITIS DEFORMANS
     Dosage: 60 TO 90MG AS NEEDED
     Route: 042
     Dates: start: 20041101, end: 20050801
  2. CALCIUM CHLORIDE [Concomitant]
     Indication: OSTEITIS DEFORMANS
     Dosage: 1000 MG, BID
     Route: 048
  3. CRESTOR [Concomitant]
     Dosage: 20 MG, QD
  4. LEUCOVORIN CALCIUM [Concomitant]
     Dosage: 10MG ALTERNATE DAYS
  5. LEVOTHYROXINE SODIUM [Concomitant]
     Indication: THYROID DISORDER
     Dosage: 200MCG QD
     Route: 048
  6. METHOTREXATE [Concomitant]
     Indication: OSTEITIS DEFORMANS
     Dosage: 2.5MG ON MONDAY
  7. PREVACID [Concomitant]
     Dosage: 30 MG, QD
     Route: 048
  8. ATIVAN [Concomitant]
     Dosage: 1 MG, BID
     Route: 048
  9. ULTRACET [Concomitant]
     Indication: PAIN
     Dosage: 1 MG, TID
     Route: 048
  10. BENAZEPRIL HYDROCHLORIDE [Concomitant]
     Dosage: 10 MG, QD
  11. CALCITONIN-SALMON [Concomitant]
     Indication: OSTEITIS DEFORMANS
     Dosage: 200 U/ML TO 50 U/ML QOD
     Dates: start: 20050201, end: 20060920
  12. PREDNISONE TAB [Concomitant]
  13. INSULIN [Concomitant]

REACTIONS (6)
  - ARTHRALGIA [None]
  - DENTAL CARIES [None]
  - HEMIPARESIS [None]
  - SWELLING [None]
  - TOOTH ABSCESS [None]
  - TOOTHACHE [None]
